FAERS Safety Report 11646418 (Version 3)
Quarter: 2016Q1

REPORT INFORMATION
  Report Type: Spontaneous
  Country: US (occurrence: US)
  Receive Date: 20151020
  Receipt Date: 20160105
  Transmission Date: 20160525
  Serious: Yes (Other)
  Sender: FDA-Public Use
  Company Number: US-ROCHE-1618842

PATIENT
  Sex: Male
  Weight: 83.99 kg

DRUGS (2)
  1. ESBRIET [Suspect]
     Active Substance: PIRFENIDONE
     Indication: IDIOPATHIC PULMONARY FIBROSIS
     Dosage: 3 CAPSULES TOTAL DOSE 2403 MG
     Route: 048
     Dates: start: 20150612
  2. ESBRIET [Suspect]
     Active Substance: PIRFENIDONE
     Dosage: 3 CAPSULES TOTAL DOSE 2403 MG
     Route: 048
     Dates: start: 20150630

REACTIONS (3)
  - Gastroenteritis viral [Unknown]
  - Dizziness [Unknown]
  - Stent placement [Unknown]
